FAERS Safety Report 5212631-X (Version None)
Quarter: 2006Q4

REPORT INFORMATION
  Report Type: 
  Country: None (occurrence: None)
  Receive Date: 20061115
  Receipt Date: 20060914
  Transmission Date: 20070319
  Serious: No
  Sender: FDA-Public Use
  Company Number: 200613397US

PATIENT
  Age: 50 Year
  Sex: Female

DRUGS (3)
  1. APIDRA [Suspect]
     Indication: DIABETES MELLITUS
     Dosage: TID
     Dates: start: 20060401
  2. OPTICLIK [Suspect]
  3. LANTUS [Concomitant]

REACTIONS (2)
  - BLOOD GLUCOSE DECREASED [None]
  - BLOOD GLUCOSE INCREASED [None]
